FAERS Safety Report 9056815 (Version 2)
Quarter: 2013Q1

REPORT INFORMATION
  Report Type: Spontaneous
  Country: NO (occurrence: NO)
  Receive Date: 20130201
  Receipt Date: 20130206
  Transmission Date: 20140127
  Serious: Yes (Hospitalization)
  Sender: FDA-Public Use
  Company Number: NO-PFIZER INC-2013036189

PATIENT
  Age: 46 Year
  Sex: Female

DRUGS (1)
  1. EFEXOR DEPOT [Suspect]
     Indication: DEPRESSION
     Dosage: UNK
     Route: 048
     Dates: start: 201210, end: 20130101

REACTIONS (6)
  - Renal impairment [Recovering/Resolving]
  - Hepatotoxicity [Recovering/Resolving]
  - Abdominal pain [Recovering/Resolving]
  - Nausea [Recovering/Resolving]
  - Listless [Recovering/Resolving]
  - Pyrexia [Recovering/Resolving]
